FAERS Safety Report 5572660-3 (Version None)
Quarter: 2007Q4

REPORT INFORMATION
  Report Type: 
  Country: None (occurrence: None)
  Receive Date: 20071130
  Receipt Date: 20061127
  Transmission Date: 20080405
  Serious: Yes (Other)
  Sender: FDA-Public Use
  Company Number: WAES 0604USA03590

PATIENT
  Age: 92 Year
  Sex: Female
  Weight: 52.6173 kg

DRUGS (4)
  1. FOSAMAX [Suspect]
     Indication: OSTEOPOROSIS
     Dosage: 70 MG/WKY/PO
     Route: 048
     Dates: start: 20010101, end: 20060424
  2. PLAVIX [Concomitant]
  3. SYNTHROID [Concomitant]
  4. VIACTIV SOFT CALCIUM CHEWS [Concomitant]

REACTIONS (2)
  - BONE FRAGMENTATION [None]
  - OSTEONECROSIS [None]
